FAERS Safety Report 11691880 (Version 2)
Quarter: 2016Q1

REPORT INFORMATION
  Report Type: Spontaneous
  Country: US (occurrence: US)
  Receive Date: 20151103
  Receipt Date: 20160121
  Transmission Date: 20160525
  Serious: No
  Sender: FDA-Public Use
  Company Number: US-OTSUKA-2015_012071

PATIENT
  Age: 35 Year
  Sex: Female

DRUGS (2)
  1. REXULTI [Suspect]
     Active Substance: BREXPIPRAZOLE
     Indication: BIPOLAR I DISORDER
     Dosage: 0.5 MG, UNK
     Route: 065
     Dates: start: 20151009
  2. REXULTI [Suspect]
     Active Substance: BREXPIPRAZOLE
     Indication: DEPRESSION

REACTIONS (2)
  - No adverse event [Unknown]
  - Off label use [Unknown]

NARRATIVE: CASE EVENT DATE: 20151009
